FAERS Safety Report 24169364 (Version 1)
Quarter: 2024Q3

REPORT INFORMATION
  Report Type: Spontaneous
  Country: MY (occurrence: MY)
  Receive Date: 20240802
  Receipt Date: 20240802
  Transmission Date: 20241016
  Serious: Yes (Other)
  Sender: ORGANON
  Company Number: MY-ORGANON-O2407MYS002759

PATIENT
  Age: 35 Year
  Sex: Female

DRUGS (1)
  1. ETONOGESTREL [Suspect]
     Active Substance: ETONOGESTREL
     Dosage: 1 IMPLANT IN LEFT ARM
     Route: 059
     Dates: start: 20240525, end: 2024

REACTIONS (8)
  - Device expulsion [Recovered/Resolved]
  - Implant site pain [Unknown]
  - Implant site erythema [Unknown]
  - Implant site bruising [Unknown]
  - Implant site abscess [Unknown]
  - Implant site infection [Unknown]
  - Implant site injury [Unknown]
  - Wrong technique in device usage process [Unknown]

NARRATIVE: CASE EVENT DATE: 20240101
